FAERS Safety Report 8174037-3 (Version None)
Quarter: 2012Q1

REPORT INFORMATION
  Report Type: 
  Country: None (occurrence: None)
  Receive Date: 20120227
  Receipt Date: 20120213
  Transmission Date: 20120608
  Serious: Yes (Hospitalization, Other)
  Sender: FDA-Public Use
  Company Number: 2010MA004114

PATIENT
  Sex: Male
  Weight: 64.4108 kg

DRUGS (68)
  1. METOCLOPRAMIDE HYDROCHLORIDE [Suspect]
     Dosage: PO
     Route: 048
     Dates: start: 20070701, end: 20100501
  2. ATARAX [Concomitant]
  3. PERCOCET [Concomitant]
  4. RANITIDINE [Concomitant]
  5. SENNALAX-S [Concomitant]
  6. SIMETHICONE [Concomitant]
  7. SINGULAIR [Concomitant]
  8. TERAZOSIN HCL [Concomitant]
  9. XANAX XR [Concomitant]
  10. NEURONTIN [Concomitant]
  11. ZANAFLEX [Concomitant]
  12. AZITHROMYCIN [Concomitant]
  13. CELEBREX [Concomitant]
  14. OXYCODONE HCL AND ACETAMINOPHEN [Concomitant]
  15. FLOMAX [Concomitant]
  16. HYDROXYZINE [Concomitant]
  17. MEGESTROL ACETATE [Concomitant]
  18. PREDNISONE TAB [Concomitant]
  19. SUCRALFATE [Concomitant]
  20. REMERON [Concomitant]
  21. CARISOPRODOL [Concomitant]
  22. CODEINE PHOSPHATE AND ACETAMINOPHEN [Concomitant]
  23. DONNATAL [Concomitant]
  24. DOXYCYCLINE [Concomitant]
  25. ENABLEX [Concomitant]
  26. HYDROCODONE BITARTRATE AND ACETAMINOPHEN [Concomitant]
  27. MECLIZINE [Concomitant]
  28. METRONIDAZOLE [Concomitant]
  29. POTASSIUM CITRATE [Concomitant]
  30. PREVACID [Concomitant]
  31. BENTYL [Concomitant]
  32. CIPROFLOXACIN [Concomitant]
  33. LACTULOSE [Concomitant]
  34. LEVAQUIN [Concomitant]
  35. LOTREL [Concomitant]
  36. OMEPRAZOLE [Concomitant]
  37. POLYETHYLENE [Concomitant]
  38. PROPOXYPHENE HCL AND ACETAMINOPHEN [Concomitant]
  39. ROPINIROLE [Concomitant]
  40. SPIRIVA [Concomitant]
  41. TRIAMCINOLONE ACETONIDE [Concomitant]
  42. GI COCKTAIL [Concomitant]
  43. ASTELIN [Concomitant]
  44. ENULOSE [Concomitant]
  45. MAGNESIUM HYDROXIDE TAB [Concomitant]
  46. NEXIUM [Concomitant]
  47. OXYBUTYNIN [Concomitant]
  48. SULFAMETHOXAZOLE AND TRIMETHOPRIM [Concomitant]
  49. DOXAZOSIN MESYLATE [Concomitant]
  50. ERYTHROMYCIN [Concomitant]
  51. FLUOXETINE HCL [Concomitant]
  52. LORAZEPAM [Concomitant]
  53. MELOXICAM [Concomitant]
  54. MICONAZOLE [Concomitant]
  55. AVODART [Concomitant]
  56. DICYCLOMINE [Concomitant]
  57. IMIPRAMINE [Concomitant]
  58. MEBENDAZOLE [Concomitant]
  59. NAPROXEN [Concomitant]
  60. PANCRELIPASE [Concomitant]
  61. PROAIR HFA [Concomitant]
  62. TUSSIONEX [Concomitant]
  63. VITACON D [Concomitant]
  64. AMBIEN [Concomitant]
  65. ADVAIR DISKUS 100/50 [Concomitant]
  66. AMOXICILLIN AND CLAVULANATE POTASSIUM [Concomitant]
  67. VITAMIN B-12 [Concomitant]
  68. FLAGYL [Concomitant]

REACTIONS (40)
  - DEPRESSION [None]
  - PAIN [None]
  - CONSTIPATION [None]
  - EMOTIONAL DISORDER [None]
  - BENIGN PROSTATIC HYPERPLASIA [None]
  - BURSITIS [None]
  - BLOOD IRON DECREASED [None]
  - ATAXIA [None]
  - DYSAESTHESIA [None]
  - DYSTONIA [None]
  - DIVERTICULUM [None]
  - NEPHROLITHIASIS [None]
  - TARDIVE DYSKINESIA [None]
  - MOTOR DYSFUNCTION [None]
  - ANXIETY [None]
  - ANAEMIA [None]
  - ENCEPHALOPATHY [None]
  - TREMOR [None]
  - DYSKINESIA [None]
  - ECONOMIC PROBLEM [None]
  - DIVERTICULITIS [None]
  - PARKINSON'S DISEASE [None]
  - HYPERTENSION [None]
  - NEUROPATHY PERIPHERAL [None]
  - WEIGHT DECREASED [None]
  - ILEUS PARALYTIC [None]
  - GASTROOESOPHAGEAL REFLUX DISEASE [None]
  - DECREASED APPETITE [None]
  - DEMENTIA ALZHEIMER'S TYPE [None]
  - DYSPEPSIA [None]
  - DYSURIA [None]
  - DYSPHAGIA [None]
  - BACK PAIN [None]
  - INSOMNIA [None]
  - FEELING ABNORMAL [None]
  - INTESTINAL OBSTRUCTION [None]
  - SPINAL OSTEOARTHRITIS [None]
  - SEPSIS [None]
  - ADHESION [None]
  - GOITRE [None]
